FAERS Safety Report 5502863-5 (Version None)
Quarter: 2007Q4

REPORT INFORMATION
  Report Type: 
  Country: None (occurrence: None)
  Receive Date: 20071029
  Receipt Date: 20071029
  Transmission Date: 20080405
  Serious: No
  Sender: FDA-Public Use
  Company Number: None

PATIENT
  Age: 42 Year
  Sex: Female
  Weight: 76.6579 kg

DRUGS (1)
  1. CHANTIX [Suspect]
     Indication: SMOKING CESSATION THERAPY
     Dosage: ONE TABLET, THEN 2 TABLETS ONCE OR TWICE DAIL PO
     Route: 048
     Dates: start: 20070914, end: 20071011

REACTIONS (10)
  - ABDOMINAL PAIN [None]
  - ANGER [None]
  - CROHN'S DISEASE [None]
  - DIARRHOEA [None]
  - FLATULENCE [None]
  - INSOMNIA [None]
  - NIGHTMARE [None]
  - SCREAMING [None]
  - SWELLING [None]
  - VOMITING [None]
